FAERS Safety Report 5656248-1 (Version None)
Quarter: 2008Q1

REPORT INFORMATION
  Report Type: 
  Country: None (occurrence: None)
  Receive Date: 20080305
  Receipt Date: 20080226
  Transmission Date: 20080703
  Serious: Yes (Hospitalization)
  Sender: FDA-Public Use
  Company Number: 2008RL000070

PATIENT
  Age: 58 Year
  Sex: Male

DRUGS (12)
  1. RYTHMOL [Suspect]
     Indication: ARRHYTHMIA
     Dosage: 300 MG; QD; PO
     Route: 048
     Dates: start: 20071130, end: 20071218
  2. BISOPROLOL FUMARATE [Suspect]
     Indication: ARRHYTHMIA
     Dosage: PO, 10 MG; QD; PO
     Route: 048
     Dates: start: 20071130, end: 20071218
  3. BISOPROLOL FUMARATE [Suspect]
     Indication: ARRHYTHMIA
     Dosage: PO, 10 MG; QD; PO
     Route: 048
     Dates: start: 20071221
  4. CYCLOSPORINE [Concomitant]
  5. PREDNISONE TAB [Concomitant]
  6. MYCOPHENOLATE MOFETIL [Concomitant]
  7. QUINAPRIL HCL [Concomitant]
  8. FERROUS SULFATE TAB [Concomitant]
  9. ALLOPURINOL [Concomitant]
  10. DOXAZOSIN MESYLATE [Concomitant]
  11. PRAVASTATIN [Concomitant]
  12. RILMENIDINE [Concomitant]

REACTIONS (3)
  - BUNDLE BRANCH BLOCK LEFT [None]
  - DRUG INTERACTION [None]
  - ELECTROCARDIOGRAM QRS COMPLEX PROLONGED [None]
